FAERS Safety Report 10945729 (Version 1)
Quarter: 2015Q1

REPORT INFORMATION
  Report Type: Spontaneous
  Country: US (occurrence: None)
  Receive Date: 20150212
  Receipt Date: 20150212
  Transmission Date: 20150721
  Serious: No
  Sender: FDA-Public Use
  Company Number: TPA2011A01752

PATIENT
  Age: 85 Year
  Sex: Male
  Weight: 87.54 kg

DRUGS (4)
  1. CARDIZEM [Concomitant]
     Active Substance: DILTIAZEM HYDROCHLORIDE
  2. ULORIC [Suspect]
     Active Substance: FEBUXOSTAT
     Indication: GOUT
     Dosage: 40 MG, 1/2 TAB QD
     Dates: start: 20110215
  3. PREDNISONE. [Concomitant]
     Active Substance: PREDNISONE
  4. ZOCOR [Concomitant]
     Active Substance: SIMVASTATIN

REACTIONS (1)
  - Dental plaque [None]

NARRATIVE: CASE EVENT DATE: 20110420
